FAERS Safety Report 4747241-1 (Version None)
Quarter: 2005Q3

REPORT INFORMATION
  Report Type: 
  Country: None (occurrence: None)
  Receive Date: 20050815
  Receipt Date: 20050707
  Transmission Date: 20060218
  Serious: Yes (Hospitalization, Other)
  Sender: FDA-Public Use
  Company Number: USA0506100979

PATIENT
  Age: 57 Year
  Sex: Male

DRUGS (4)
  1. CIALIS [Suspect]
     Indication: ERECTILE DYSFUNCTION
     Dosage: 20 MG
  2. ZOCOR [Concomitant]
  3. ASPIRIN [Concomitant]
  4. PREVACID [Concomitant]

REACTIONS (1)
  - MYOCARDIAL INFARCTION [None]
